FAERS Safety Report 8503082-0 (Version None)
Quarter: 2012Q3

REPORT INFORMATION
  Report Type: 
  Country: None (occurrence: None)
  Receive Date: 20120711
  Receipt Date: 20120702
  Transmission Date: 20120928
  Serious: Yes (Other)
  Sender: FDA-Public Use
  Company Number: US-ELI_LILLY_AND_COMPANY-US201107003491

PATIENT
  Sex: Female
  Weight: 43.6 kg

DRUGS (12)
  1. FORTEO [Suspect]
     Indication: OSTEOPOROSIS
     Dosage: 20 UG, QD
     Route: 065
     Dates: start: 20110610
  2. TRICHLON [Concomitant]
  3. POTASSIUM CHLORIDE [Concomitant]
  4. ULTRAM [Concomitant]
  5. FORTEO [Suspect]
     Dosage: 20 UG, 3/W
     Route: 065
  6. FORTEO [Suspect]
     Dosage: 20 UG, 3/W
     Route: 065
  7. VITAMIN D [Concomitant]
  8. CALCITONIN SALMON [Concomitant]
  9. CALTRATE                           /00944201/ [Concomitant]
  10. PERIACTIN [Concomitant]
  11. MULTIVITAMINS PLUS IRON [Concomitant]
  12. FISH OIL [Concomitant]

REACTIONS (14)
  - BACK PAIN [None]
  - DRUG DOSE OMISSION [None]
  - DECREASED APPETITE [None]
  - WEIGHT DECREASED [None]
  - CHEST PAIN [None]
  - MALAISE [None]
  - DYSGEUSIA [None]
  - INAPPROPRIATE SCHEDULE OF DRUG ADMINISTRATION [None]
  - ALOPECIA [None]
  - BODY TEMPERATURE DECREASED [None]
  - TREMOR [None]
  - ANEURYSM [None]
  - FEELING OF BODY TEMPERATURE CHANGE [None]
  - NAUSEA [None]
